FAERS Safety Report 5781796-3 (Version None)
Quarter: 2008Q2

REPORT INFORMATION
  Report Type: 
  Country: None (occurrence: None)
  Receive Date: 20080623
  Receipt Date: 20080612
  Transmission Date: 20081010
  Serious: Yes (Hospitalization, Other)
  Sender: FDA-Public Use
  Company Number: US-BAYER-200811865BCC

PATIENT
  Age: 54 Year
  Sex: Female
  Weight: 74 kg

DRUGS (9)
  1. ASPIRIN [Suspect]
     Indication: ISCHAEMIC HEART DISEASE PROPHYLAXIS
     Dosage: TOTAL DAILY DOSE: 325 MG  UNIT DOSE: 325 MG
     Route: 048
     Dates: start: 19950801
  2. ASPIRIN [Suspect]
     Dosage: TOTAL DAILY DOSE: 325 MG  UNIT DOSE: 325 MG
     Route: 048
     Dates: start: 19950801
  3. CADUET [Concomitant]
  4. ZETIA [Concomitant]
  5. COZAAR [Concomitant]
  6. PLAVIX [Concomitant]
     Dates: start: 20000101
  7. SPIRONOLACTONE [Concomitant]
     Dates: start: 20070101
  8. SOTALOL HCL [Concomitant]
     Dates: start: 20020101
  9. POTASSIUM CHLORIDE [Concomitant]
     Dates: start: 20070101

REACTIONS (10)
  - BURNING SENSATION [None]
  - CARDIAC OPERATION [None]
  - CHEST DISCOMFORT [None]
  - CHEST PAIN [None]
  - DIZZINESS [None]
  - GASTRITIS [None]
  - LOSS OF CONSCIOUSNESS [None]
  - MYOCARDIAL INFARCTION [None]
  - NAUSEA [None]
  - VOMITING [None]
